FAERS Safety Report 5353068-2 (Version None)
Quarter: 2007Q2

REPORT INFORMATION
  Report Type: 
  Country: None (occurrence: None)
  Receive Date: 20070611
  Receipt Date: 20070531
  Transmission Date: 20071010
  Serious: Yes (Other)
  Sender: FDA-Public Use
  Company Number: IE-PFIZER INC-2007044079

PATIENT
  Age: 67 Year
  Sex: Male

DRUGS (1)
  1. SPIRONOLACTONE [Suspect]
     Route: 048

REACTIONS (3)
  - BLOOD CREATININE INCREASED [None]
  - BLOOD UREA INCREASED [None]
  - OEDEMA PERIPHERAL [None]
